FAERS Safety Report 18260697 (Version 2)
Quarter: 2020Q4

REPORT INFORMATION
  Report Type: Spontaneous
  Country: US (occurrence: US)
  Receive Date: 20200914
  Receipt Date: 20201012
  Transmission Date: 20210113
  Serious: Yes (Other)
  Sender: FDA-Public Use
  Company Number: US-GILEAD-2020-0494362

PATIENT
  Age: 67 Year
  Sex: Female
  Weight: 66.67 kg

DRUGS (12)
  1. VITAMIN D [COLECALCIFEROL] [Concomitant]
     Active Substance: CHOLECALCIFEROL
  2. EPCLUSA [Suspect]
     Active Substance: SOFOSBUVIR\VELPATASVIR
     Indication: CHRONIC HEPATITIS C
     Dosage: 1 DOSAGE FORM
     Route: 048
     Dates: start: 20200318, end: 20200609
  3. BIOTIN [Concomitant]
     Active Substance: BIOTIN
  4. VALIUM [Concomitant]
     Active Substance: DIAZEPAM
  5. GLUCOSAMINE [Concomitant]
     Active Substance: GLUCOSAMINE
  6. OCUVITE [ASCORBIC ACID;RETINOL;TOCOPHEROL] [Concomitant]
  7. AMBIEN CR [Concomitant]
     Active Substance: ZOLPIDEM TARTRATE
  8. ESTRADIOL. [Concomitant]
     Active Substance: ESTRADIOL
  9. MULTIVITAMIN AND MINERAL SUPPLEMENT [Concomitant]
     Active Substance: MINERALS\VITAMINS
  10. RESTASIS [Concomitant]
     Active Substance: CYCLOSPORINE
  11. EPCLUSA [Suspect]
     Active Substance: SOFOSBUVIR\VELPATASVIR
     Indication: HEPATIC FIBROSIS
  12. AMITRIPTYLINE [Concomitant]
     Active Substance: AMITRIPTYLINE

REACTIONS (2)
  - Hepatitis C [Not Recovered/Not Resolved]
  - Drug ineffective [Not Recovered/Not Resolved]

NARRATIVE: CASE EVENT DATE: 20200831
